FAERS Safety Report 5506021-X (Version None)
Quarter: 2007Q4

REPORT INFORMATION
  Report Type: 
  Country: None (occurrence: None)
  Receive Date: 20071101
  Receipt Date: 20071017
  Transmission Date: 20080405
  Serious: Yes (Hospitalization)
  Sender: FDA-Public Use
  Company Number: 163111ISR

PATIENT
  Age: 43 Year
  Sex: Male

DRUGS (5)
  1. CARBOPLATIN [Suspect]
  2. ALLOPURINOL [Suspect]
  3. DAUNORUBICIN HCL [Suspect]
  4. HYDROXYCARBAMIDE [Suspect]
  5. ELITEK [Suspect]

REACTIONS (6)
  - BIOPSY KIDNEY ABNORMAL [None]
  - BLOOD POTASSIUM INCREASED [None]
  - HAEMODIALYSIS [None]
  - RENAL FAILURE ACUTE [None]
  - RENAL TUBULAR DISORDER [None]
  - TUMOUR LYSIS SYNDROME [None]
